FAERS Safety Report 18777856 (Version 7)
Quarter: 2022Q1

REPORT INFORMATION
  Report Type: Spontaneous
  Country: US (occurrence: US)
  Receive Date: 20210122
  Receipt Date: 20220111
  Transmission Date: 20220423
  Serious: Yes (Hospitalization, Other)
  Sender: FDA-Public Use
  Company Number: US-SEATTLE GENETICS-2020SGN03554

PATIENT
  Sex: Female

DRUGS (9)
  1. TUKYSA [Suspect]
     Active Substance: TUCATINIB
     Indication: Breast cancer female
     Dosage: UNK UNK, BID
     Route: 065
  2. TUKYSA [Suspect]
     Active Substance: TUCATINIB
     Dosage: UNK, BID
     Route: 065
  3. TUKYSA [Suspect]
     Active Substance: TUCATINIB
     Dosage: UNK UNK, BID
     Route: 065
  4. TUKYSA [Suspect]
     Active Substance: TUCATINIB
     Dosage: UNK UNK, BID
     Route: 065
  5. TUKYSA [Suspect]
     Active Substance: TUCATINIB
     Dosage: UNK UNK, BID
     Route: 065
  6. TUKYSA [Suspect]
     Active Substance: TUCATINIB
     Dosage: UNK UNK, BID
     Route: 065
  7. TUKYSA [Suspect]
     Active Substance: TUCATINIB
     Dosage: UNK
     Route: 065
  8. TUKYSA [Suspect]
     Active Substance: TUCATINIB
     Dosage: UNK
     Route: 065
  9. CAPECITABINE [Suspect]
     Active Substance: CAPECITABINE
     Indication: Breast cancer female
     Dosage: 1000MG IN THE MORNING AND 1000MG IN THE EVENING
     Route: 065
     Dates: start: 20200910

REACTIONS (36)
  - Brain operation [Unknown]
  - Neuropathy peripheral [Unknown]
  - Contrast media reaction [Unknown]
  - Noninfective encephalitis [Unknown]
  - Brain neoplasm [Unknown]
  - Metastases to bone [Unknown]
  - Seizure [Unknown]
  - Lip pain [Unknown]
  - Full blood count abnormal [Unknown]
  - Faeces pale [Unknown]
  - Sinusitis [Unknown]
  - Muscle spasms [Unknown]
  - Dry mouth [Unknown]
  - Skin discolouration [Recovering/Resolving]
  - Osteolysis [Unknown]
  - Pigmentation disorder [Not Recovered/Not Resolved]
  - Surgery [Unknown]
  - Neoplasm progression [Unknown]
  - Central nervous system lesion [Unknown]
  - Radiotherapy to brain [Unknown]
  - Pruritus [Unknown]
  - Adverse drug reaction [Recovering/Resolving]
  - Product dose omission issue [Unknown]
  - Unevaluable event [Unknown]
  - Decreased activity [Unknown]
  - Radiation necrosis [Unknown]
  - Platelet count decreased [Recovering/Resolving]
  - Abdominal pain upper [Unknown]
  - Hepatic enzyme increased [Unknown]
  - Lip blister [Unknown]
  - Erythema [Recovering/Resolving]
  - Skin exfoliation [Not Recovered/Not Resolved]
  - Urticaria [Unknown]
  - Nausea [Unknown]
  - Vomiting [Unknown]
  - Diarrhoea [Recovering/Resolving]
